FAERS Safety Report 20653288 (Version 1)
Quarter: 2022Q1

REPORT INFORMATION
  Report Type: Spontaneous
  Country: JP (occurrence: JP)
  Receive Date: 20220330
  Receipt Date: 20220330
  Transmission Date: 20220423
  Serious: Yes (Hospitalization, Other)
  Sender: FDA-Public Use
  Company Number: JP-ASTELLAS-2022JP004890

PATIENT
  Age: 9 Decade
  Sex: Female
  Weight: 45 kg

DRUGS (1)
  1. TACROLIMUS [Suspect]
     Active Substance: TACROLIMUS
     Indication: Rheumatoid arthritis
     Dosage: 0.5 MG/DAY, UNKNOWN FREQ.
     Route: 065

REACTIONS (3)
  - Diabetic ketosis [Recovering/Resolving]
  - Diabetes mellitus [Recovering/Resolving]
  - Prescribed underdose [Unknown]
